FAERS Safety Report 26146200 (Version 3)
Quarter: 2025Q4

REPORT INFORMATION
  Report Type: Report from Study
  Country: US (occurrence: US)
  Receive Date: 20251211
  Receipt Date: 20251229
  Transmission Date: 20260118
  Serious: Yes (Hospitalization)
  Sender: MALLINCKRODT
  Company Number: US-MALLINCKRODT-MNK202507691

PATIENT
  Age: 10 Month
  Sex: Male
  Weight: 8 kg

DRUGS (6)
  1. CORTICOTROPIN [Suspect]
     Active Substance: CORTICOTROPIN
     Indication: Infantile spasms
     Dosage: 28.8 UNITS
     Route: 030
     Dates: start: 20251121, end: 2025
  2. CORTICOTROPIN [Suspect]
     Active Substance: CORTICOTROPIN
     Dosage: 3.8 UNITS
     Route: 030
     Dates: start: 2025, end: 20251218
  3. GABAPENTIN [Concomitant]
     Active Substance: GABAPENTIN
     Dosage: UNKNOWN
  4. KEPPRA [Concomitant]
     Active Substance: LEVETIRACETAM
     Dosage: UNKNOWN
  5. SABRIL [Concomitant]
     Active Substance: VIGABATRIN
     Dosage: UNKNOWN
  6. VIMPAT [Concomitant]
     Active Substance: LACOSAMIDE
     Dosage: UNKNOWN

REACTIONS (1)
  - Gastrointestinal tube insertion [Unknown]
